FAERS Safety Report 8666360 (Version 4)
Quarter: 2014Q1

REPORT INFORMATION
  Report Type: Report from Study
  Country: US (occurrence: US)
  Receive Date: 20120716
  Receipt Date: 20140120
  Transmission Date: 20141002
  Serious: Yes (Hospitalization)
  Sender: FDA-Public Use
  Company Number: US-ROCHE-1078137

PATIENT
  Age: 65 Year
  Sex: Male
  Weight: 71 kg

DRUGS (5)
  1. PEG-INTERFERON ALFA 2A [Suspect]
     Indication: CHRONIC HEPATITIS C
     Dosage: MOST RECENT DOSE:13/APR/2012
     Route: 065
     Dates: start: 20120330
  2. RIBAVIRIN [Suspect]
     Indication: CHRONIC HEPATITIS C
     Dosage: MOST RECENT DOSE:13/APR/2012
     Route: 048
     Dates: start: 20120330
  3. TELAPREVIR [Suspect]
     Indication: CHRONIC HEPATITIS C
     Dosage: MOST RECENT DOSE: 13/MAY/2012
     Route: 065
     Dates: start: 20120330
  4. NADOLOL [Concomitant]
     Indication: PORTAL HYPERTENSION
     Route: 042
  5. DEMECLOCYCLINE [Concomitant]
     Indication: INAPPROPRIATE ANTIDIURETIC HORMONE SECRETION

REACTIONS (1)
  - Pancytopenia [Recovered/Resolved with Sequelae]
